FAERS Safety Report 26154998 (Version 1)
Quarter: 2025Q4

REPORT INFORMATION
  Report Type: Spontaneous
  Country: US (occurrence: US)
  Receive Date: 20251215
  Receipt Date: 20251215
  Transmission Date: 20260117
  Serious: No
  Sender: TOLMAR
  Company Number: US-Tolmar-TLM-2025-09319

PATIENT

DRUGS (2)
  1. ELIGARD [Suspect]
     Active Substance: LEUPROLIDE ACETATE
     Indication: Prostate cancer
     Dosage: BOX: 15498CUS EXP: 04-2027?SN#: 7783723272123?GTIN: 00362935227106?NDC: 62935-227-10?SYRINGE A: 1549
  2. DEVICE [Suspect]
     Active Substance: DEVICE
     Indication: Prostate cancer
     Dosage: BOX: 15498CUS EXP: 04-2027?SN#: 7783723272123?GTIN: 00362935227106?NDC: 62935-227-10?SYRINGE A: 1549

REACTIONS (2)
  - Intercepted product preparation error [Unknown]
  - Product packaging quantity issue [Unknown]
